FAERS Safety Report 6555434-6 (Version None)
Quarter: 2010Q1

REPORT INFORMATION
  Report Type: 
  Country: None (occurrence: None)
  Receive Date: 20100128
  Receipt Date: 20091124
  Transmission Date: 20100710
  Serious: Yes (Other)
  Sender: FDA-Public Use
  Company Number: A0826661A

PATIENT
  Age: 59 Year
  Sex: Male

DRUGS (3)
  1. WELLBUTRIN [Suspect]
     Indication: DEPRESSION
     Dosage: 300MG PER DAY
     Route: 048
  2. PROPRANOLOL [Concomitant]
  3. TRAZODONE [Concomitant]

REACTIONS (2)
  - DELUSION [None]
  - HALLUCINATION [None]
